FAERS Safety Report 23073696 (Version 3)
Quarter: 2024Q1

REPORT INFORMATION
  Report Type: Spontaneous
  Country: US (occurrence: US)
  Receive Date: 20231017
  Receipt Date: 20240226
  Transmission Date: 20240410
  Serious: Yes (Other)
  Sender: FDA-Public Use
  Company Number: US-BRISTOL-MYERS SQUIBB COMPANY-2023-146998

PATIENT
  Age: 55 Year
  Sex: Female

DRUGS (1)
  1. REVLIMID [Suspect]
     Active Substance: LENALIDOMIDE
     Indication: Plasma cell myeloma
     Dosage: FREQUENCY: 21 DAYS ON 7 DAYS OFF/1 CAPSULE DAILY FOR 21 DAYS AND 7 DAYS OFF
     Route: 048
     Dates: end: 20231004

REACTIONS (2)
  - Renal impairment [Unknown]
  - Nasopharyngitis [Unknown]
